FAERS Safety Report 5960330-9 (Version None)
Quarter: 2008Q4

REPORT INFORMATION
  Report Type: 
  Country: None (occurrence: None)
  Receive Date: 20081120
  Receipt Date: 20081111
  Transmission Date: 20090506
  Serious: Yes (Other)
  Sender: FDA-Public Use
  Company Number: GB-JNJFOC-20081102512

PATIENT
  Age: 16 Year
  Sex: Female

DRUGS (4)
  1. TOPAMAX [Suspect]
     Indication: EPILEPSY
     Route: 048
  2. OLANZAPINE [Concomitant]
  3. HALOPERIDOL [Concomitant]
  4. VALPROATE SODIUM [Concomitant]

REACTIONS (3)
  - HALLUCINATION, VISUAL [None]
  - PSYCHOTIC DISORDER [None]
  - WEIGHT INCREASED [None]
